FAERS Safety Report 19417221 (Version 1)
Quarter: 2021Q2

REPORT INFORMATION
  Report Type: Spontaneous
  Country: US (occurrence: US)
  Receive Date: 20210614
  Receipt Date: 20210614
  Transmission Date: 20210717
  Serious: Yes (Hospitalization)
  Sender: FDA-Public Use
  Company Number: None

PATIENT
  Age: 69 Year
  Sex: Male
  Weight: 91 kg

DRUGS (1)
  1. LISINOPRIL (LISINOPRIL 20MG TAB, UD) [Suspect]
     Active Substance: LISINOPRIL
     Indication: HYPERTENSION
     Dosage: 20 MG AM PO
     Route: 048
     Dates: start: 20201216, end: 20201228

REACTIONS (1)
  - Angioedema [None]

NARRATIVE: CASE EVENT DATE: 20201231
